FAERS Safety Report 5590423-X (Version None)
Quarter: 2008Q1

REPORT INFORMATION
  Report Type: 
  Country: None (occurrence: None)
  Receive Date: 20080109
  Receipt Date: 20080103
  Transmission Date: 20080703
  Serious: Yes (Other)
  Sender: FDA-Public Use
  Company Number: 2007SP024453

PATIENT
  Age: 46 Year
  Sex: Female

DRUGS (4)
  1. PEG-INTRON [Suspect]
     Indication: HEPATITIS B
     Dosage: SC
     Route: 058
     Dates: start: 20071114, end: 20071219
  2. PEG-INTRON [Suspect]
     Indication: HEPATITIS C
     Dosage: SC
     Route: 058
     Dates: start: 20071114, end: 20071219
  3. RIBAVIRIN [Suspect]
     Indication: HEPATITIS B
     Dosage: PO
     Route: 048
     Dates: start: 20071114, end: 20071219
  4. RIBAVIRIN [Suspect]
     Indication: HEPATITIS C
     Dosage: PO
     Route: 048
     Dates: start: 20071114, end: 20071219

REACTIONS (25)
  - AGGRESSION [None]
  - AGITATION [None]
  - ANAEMIA [None]
  - ANGER [None]
  - ANXIETY [None]
  - CHILLS [None]
  - CONDITION AGGRAVATED [None]
  - CRYING [None]
  - DECREASED APPETITE [None]
  - DEPRESSION [None]
  - DIZZINESS [None]
  - INJECTION SITE DISCOLOURATION [None]
  - INJECTION SITE ERYTHEMA [None]
  - MALAISE [None]
  - NAUSEA [None]
  - PAIN [None]
  - PYREXIA [None]
  - RASH PRURITIC [None]
  - STRESS [None]
  - SUICIDAL IDEATION [None]
  - TINEA INFECTION [None]
  - TREATMENT NONCOMPLIANCE [None]
  - UNEVALUABLE EVENT [None]
  - VOMITING [None]
  - WEIGHT INCREASED [None]
